FAERS Safety Report 5793837-8 (Version None)
Quarter: 2008Q2

REPORT INFORMATION
  Report Type: 
  Country: None (occurrence: None)
  Receive Date: 20080627
  Receipt Date: 20080620
  Transmission Date: 20081010
  Serious: Yes (Other)
  Sender: FDA-Public Use
  Company Number: TR-BOEHRINGER INGELHEIM GMBH, GERMANY-2008-BP-09636RO

PATIENT
  Age: 39 Year
  Sex: Female
  Weight: 80 kg

DRUGS (2)
  1. LIDOCAINE [Suspect]
     Indication: NERVE BLOCK
  2. BUPIVACAINE [Suspect]
     Indication: NERVE BLOCK

REACTIONS (2)
  - DYSPHONIA [None]
  - HORNER'S SYNDROME [None]
